FAERS Safety Report 6247741-1 (Version None)
Quarter: 2009Q2

REPORT INFORMATION
  Report Type: 
  Country: None (occurrence: None)
  Receive Date: 20090626
  Receipt Date: 20090623
  Transmission Date: 20091009
  Serious: Yes (Death, Hospitalization, Other)
  Sender: FDA-Public Use
  Company Number: PHHY2009BR25187

PATIENT
  Sex: Female

DRUGS (3)
  1. FORASEQ [Suspect]
     Dosage: 12/400 UG, TID
  2. CAPTOPRIL [Concomitant]
     Indication: BLOOD PRESSURE
     Dosage: 2 DF/DAY
  3. AMITRIPTYLINE HCL [Concomitant]
     Indication: DEPRESSION
     Dosage: 4 DF AT NIGHT

REACTIONS (3)
  - DYSPNOEA [None]
  - LUNG NEOPLASM MALIGNANT [None]
  - RESPIRATORY ARREST [None]
